FAERS Safety Report 4472801-5 (Version None)
Quarter: 2004Q4

REPORT INFORMATION
  Report Type: 
  Country: None (occurrence: None)
  Receive Date: 20041013
  Receipt Date: 20041005
  Transmission Date: 20050328
  Serious: Yes (Other)
  Sender: FDA-Public Use
  Company Number: 200419936GDDC

PATIENT
  Age: 45 Year
  Sex: Female
  Weight: 42 kg

DRUGS (10)
  1. RIFAMPICIN [Suspect]
     Indication: DISSEMINATED TUBERCULOSIS
     Route: 048
  2. RIFAMPICIN [Suspect]
     Indication: LYMPHADENITIS
     Route: 048
  3. ISONIAZID [Suspect]
     Indication: DISSEMINATED TUBERCULOSIS
     Route: 048
  4. ISONIAZID [Suspect]
     Indication: LYMPHADENITIS
     Route: 048
  5. PYRAZINAMIDE [Suspect]
     Indication: DISSEMINATED TUBERCULOSIS
     Route: 048
  6. PYRAZINAMIDE [Suspect]
     Indication: LYMPHADENITIS
     Route: 048
  7. ETHAMBUTOL HCL [Suspect]
     Indication: DISSEMINATED TUBERCULOSIS
     Route: 048
  8. ETHAMBUTOL HCL [Suspect]
     Indication: LYMPHADENITIS
     Route: 048
  9. DEXAMETHASONE [Concomitant]
     Route: 048
  10. MANNITOL [Concomitant]
     Route: 042

REACTIONS (3)
  - RENAL IMPAIRMENT [None]
  - RETINAL HAEMORRHAGE [None]
  - THROMBOCYTOPENIA [None]
